FAERS Safety Report 6093223-X (Version None)
Quarter: 2009Q1

REPORT INFORMATION
  Report Type: 
  Country: None (occurrence: None)
  Receive Date: 20090226
  Receipt Date: 20090223
  Transmission Date: 20090719
  Serious: Yes (Hospitalization, Other)
  Sender: FDA-Public Use
  Company Number: FR-BRISTOL-MYERS SQUIBB COMPANY-14481550

PATIENT
  Age: 19 Year
  Sex: Female
  Weight: 51 kg

DRUGS (7)
  1. ABILIFY [Interacting]
     Indication: PSYCHOTIC DISORDER
     Dosage: 10MG EVERY OTHER DAY
     Route: 048
     Dates: start: 20090106
  2. EFFEXOR [Interacting]
     Indication: DEPRESSION
     Route: 048
     Dates: start: 20081218, end: 20090122
  3. TERCIAN [Suspect]
     Indication: ANXIETY
     Dosage: 1 AND A HALF TABLET(0.5 TAB AT MORNING - 1 AT EVENING)
     Route: 048
     Dates: start: 20090106, end: 20090122
  4. TERCIAN [Suspect]
     Indication: ORTHOSTATIC HYPOTENSION
     Dosage: 1 AND A HALF TABLET(0.5 TAB AT MORNING - 1 AT EVENING)
     Route: 048
     Dates: start: 20090106, end: 20090122
  5. HEPTAMYL [Concomitant]
     Indication: ORTHOSTATIC HYPOTENSION
     Dosage: 1 AT MORNING - 1 AT EVENING, DOSE INCREASED TO 2 DOSE FORM THRICE DAILY.
     Route: 048
     Dates: start: 20090106
  6. IMOVANE [Concomitant]
     Dosage: 1 DF = 1 TABLET
     Route: 048
  7. DUPHALAC [Concomitant]
     Dosage: 1 AT MORNING - 1 AT EVENING
     Route: 048

REACTIONS (9)
  - DIARRHOEA [None]
  - DRUG INTERACTION [None]
  - FATIGUE [None]
  - HYPOGLYCAEMIA [None]
  - MALAISE [None]
  - ORTHOSTATIC HYPOTENSION [None]
  - SOMNOLENCE [None]
  - TREMOR [None]
  - VOMITING [None]
